FAERS Safety Report 7788321-6 (Version None)
Quarter: 2011Q3

REPORT INFORMATION
  Report Type: 
  Country: None (occurrence: None)
  Receive Date: 20110927
  Receipt Date: 20110913
  Transmission Date: 20111222
  Serious: Yes (Hospitalization)
  Sender: FDA-Public Use
  Company Number: 1000024071

PATIENT
  Age: 84 Year
  Sex: Male

DRUGS (3)
  1. ARICEPT [Concomitant]
  2. MEMANTINE HYDROCHLORIDE [Suspect]
     Indication: DEMENTIA ALZHEIMER'S TYPE
     Dosage: ORAL
     Route: 048
     Dates: start: 20110623, end: 20110714
  3. MEMANTINE HYDROCHLORIDE [Suspect]
     Indication: DEMENTIA ALZHEIMER'S TYPE
     Dosage: 20 MG (20 MG, 1 N 1 D),ORAL
     Route: 048
     Dates: start: 20110715

REACTIONS (2)
  - GAIT DISTURBANCE [None]
  - PYREXIA [None]
